FAERS Safety Report 4354748-8 (Version None)
Quarter: 2004Q2

REPORT INFORMATION
  Report Type: 
  Country: None (occurrence: None)
  Receive Date: 20040504
  Receipt Date: 20040422
  Transmission Date: 20050107
  Serious: Yes (Death, Hospitalization)
  Sender: FDA-Public Use
  Company Number: 2004-BP-00729NB

PATIENT
  Age: 81 Year
  Sex: Male

DRUGS (2)
  1. MOBIC [Suspect]
     Indication: ARTHRALGIA
     Dosage: NR (NR)PO
     Route: 048
     Dates: start: 20030606
  2. NEUER (CETRAXATE HYDROCHLORIDE) (KA) [Concomitant]

REACTIONS (2)
  - GENERALISED OEDEMA [None]
  - INTERSTITIAL LUNG DISEASE [None]
